FAERS Safety Report 14143285 (Version 2)
Quarter: 2017Q4

REPORT INFORMATION
  Report Type: Spontaneous
  Country: US (occurrence: US)
  Receive Date: 20171030
  Receipt Date: 20171121
  Transmission Date: 20180321
  Serious: No
  Sender: FDA-Public Use
  Company Number: US-009507513-1710USA013728

PATIENT
  Sex: Female
  Weight: 81.63 kg

DRUGS (2)
  1. NEXPLANON [Suspect]
     Active Substance: ETONOGESTREL
     Indication: CONTRACEPTION
     Dosage: 68 MG IMPLANT, LEFT FOREARM
     Route: 059
     Dates: start: 20170308
  2. NEXPLANON [Suspect]
     Active Substance: ETONOGESTREL
     Dosage: 68 MG IMPLANT, 25-OCT-2017-25-OCT-2020, INNER, UPPER LEFT ARM
     Route: 058
     Dates: start: 20171025

REACTIONS (4)
  - Device breakage [Recovered/Resolved]
  - Burning sensation [Recovered/Resolved]
  - Implant site reaction [Unknown]
  - Implant site pain [Unknown]

NARRATIVE: CASE EVENT DATE: 2017
